FAERS Safety Report 20809016 (Version 2)
Quarter: 2022Q2

REPORT INFORMATION
  Report Type: Spontaneous
  Country: US (occurrence: US)
  Receive Date: 20220510
  Receipt Date: 20220531
  Transmission Date: 20220721
  Serious: No
  Sender: FDA-Public Use
  Company Number: US-PFIZER INC-202200677456

PATIENT
  Age: 67 Year
  Sex: Female

DRUGS (2)
  1. PAXLOVID [Suspect]
     Active Substance: NIRMATRELVIR\RITONAVIR
     Indication: COVID-19 treatment
     Dosage: UNK
     Dates: start: 20220502, end: 20220506
  2. LISINOPRIL [Concomitant]
     Active Substance: LISINOPRIL
     Dosage: 40 MG

REACTIONS (4)
  - Dysgeusia [Recovering/Resolving]
  - Nausea [Recovering/Resolving]
  - Diarrhoea [Recovering/Resolving]
  - Visual impairment [Unknown]

NARRATIVE: CASE EVENT DATE: 20220503
